FAERS Safety Report 12729790 (Version 1)
Quarter: 2016Q3

REPORT INFORMATION
  Report Type: Spontaneous
  Country: DE (occurrence: DE)
  Receive Date: 20160909
  Receipt Date: 20160909
  Transmission Date: 20161109
  Serious: Yes (Other)
  Sender: FDA-Public Use
  Company Number: DE-TEVA-689656GER

PATIENT
  Sex: Male

DRUGS (3)
  1. DIAZEPAM-RATIOPHARM 10 MG/2 ML INJEKTIONSLOESUNG [Suspect]
     Active Substance: DIAZEPAM
     Indication: EPILEPSY
  2. MIDAZOLAM- RATIOPHARM 15 MG/3 ML INJEKTIONSLOESUNG [Interacting]
     Active Substance: MIDAZOLAM\MIDAZOLAM HYDROCHLORIDE
     Indication: EPILEPSY
  3. ERGENYL CHRONO 300 [Interacting]
     Active Substance: VALPROIC ACID
     Indication: EPILEPSY
     Route: 065

REACTIONS (3)
  - Weight decreased [Unknown]
  - Drug interaction [Unknown]
  - Drug effect decreased [Unknown]
